FAERS Safety Report 6874693-3 (Version None)
Quarter: 2010Q3

REPORT INFORMATION
  Report Type: 
  Country: None (occurrence: None)
  Receive Date: 20100722
  Receipt Date: 20100715
  Transmission Date: 20110219
  Serious: Yes (Other)
  Sender: FDA-Public Use
  Company Number: RB-13134-2010

PATIENT
  Sex: Female

DRUGS (2)
  1. SUBOXONE [Suspect]
     Indication: DRUG DEPENDENCE
     Dosage: (14 MG QD SUBLINGUAL)
     Route: 060
     Dates: start: 20100428, end: 20100613
  2. SUBUTEX [Suspect]
     Indication: DRUG DEPENDENCE
     Dosage: (20 MG QD SUBLINGUAL)
     Route: 060
     Dates: start: 20100614

REACTIONS (3)
  - ABORTION SPONTANEOUS [None]
  - DRUG EXPOSURE DURING PREGNANCY [None]
  - PRODUCT SUBSTITUTION ISSUE [None]
